FAERS Safety Report 4322555-8 (Version None)
Quarter: 2004Q1

REPORT INFORMATION
  Report Type: 
  Country: None (occurrence: None)
  Receive Date: 20040319
  Receipt Date: 20040310
  Transmission Date: 20041129
  Serious: Yes (Hospitalization, Other)
  Sender: FDA-Public Use
  Company Number: 2004-03-0729

PATIENT
  Age: 4 Month
  Sex: Female

DRUGS (2)
  1. GENTAMICIN [Suspect]
     Indication: WOUND INFECTION
     Dosage: 7.5 MG/KG QD INTRAVENOUS
     Route: 042
  2. AMPICILLIN SODIUM [Concomitant]

REACTIONS (8)
  - BARTTER'S SYNDROME [None]
  - BLOOD CALCIUM DECREASED [None]
  - BLOOD URIC ACID DECREASED [None]
  - HYPOALBUMINAEMIA [None]
  - HYPOKALAEMIA [None]
  - ILEUS PARALYTIC [None]
  - METABOLIC ALKALOSIS [None]
  - URINE CHLORIDE INCREASED [None]
